FAERS Safety Report 13362551 (Version 2)
Quarter: 2017Q1

REPORT INFORMATION
  Report Type: Spontaneous
  Country: US (occurrence: US)
  Receive Date: 20170323
  Receipt Date: 20170330
  Transmission Date: 20170429
  Serious: No
  Sender: FDA-Public Use
  Company Number: US-PFIZER INC-2017123078

PATIENT
  Age: 61 Year
  Sex: Female

DRUGS (2)
  1. IBRANCE [Suspect]
     Active Substance: PALBOCICLIB
     Indication: NEOPLASM
     Dosage: 125 MG, CYCLIC(TAKE 1 CAPSULE EVERY DAY.ADMINISTER ON DAYS 1 THROUGH 21 OF A 28-DAY TREATMENT CYCLE)
     Route: 048
     Dates: start: 201610
  2. FASLODEX [Suspect]
     Active Substance: FULVESTRANT
     Dosage: UNK

REACTIONS (6)
  - Cough [Recovered/Resolved]
  - Influenza like illness [Recovered/Resolved]
  - White blood cell count decreased [Unknown]
  - Tonsillar hypertrophy [Recovered/Resolved]
  - Sneezing [Recovered/Resolved]
  - Upper respiratory tract infection [Unknown]
